FAERS Safety Report 4616350-X (Version None)
Quarter: 2005Q1

REPORT INFORMATION
  Report Type: 
  Country: None (occurrence: None)
  Receive Date: 20050321
  Receipt Date: 20050228
  Transmission Date: 20050727
  Serious: Yes (Death, Hospitalization)
  Sender: FDA-Public Use
  Company Number: 10456

PATIENT
  Sex: Female

DRUGS (6)
  1. METHOTREXATE [Suspect]
     Indication: RHEUMATOID ARTHRITIS
     Dosage: 25 MG WEEKLY SC
     Route: 058
     Dates: start: 20000316
  2. PLAQUENIL [Concomitant]
  3. PREDNISONE [Concomitant]
  4. ACCUPRIL [Concomitant]
  5. SULAR [Concomitant]
  6. LEFLUNOMIDE [Concomitant]

REACTIONS (10)
  - BRONCHOPNEUMONIA [None]
  - COMA [None]
  - CONDITION AGGRAVATED [None]
  - ELECTROCARDIOGRAM CHANGE [None]
  - ORAL CANDIDIASIS [None]
  - PNEUMONIA VIRAL [None]
  - PNEUMONITIS [None]
  - PULMONARY FIBROSIS [None]
  - RESPIRATORY FAILURE [None]
  - THERAPY NON-RESPONDER [None]
